FAERS Safety Report 8536612-3 (Version None)
Quarter: 2012Q3

REPORT INFORMATION
  Report Type: 
  Country: None (occurrence: None)
  Receive Date: 20120712
  Receipt Date: 20120702
  Transmission Date: 20120928
  Serious: Yes (Other)
  Sender: FDA-Public Use
  Company Number: ACO_30986_2012

PATIENT
  Age: 63 Year
  Sex: Male

DRUGS (2)
  1. AVONEX [Concomitant]
  2. AMPYRA [Suspect]
     Indication: GAIT DISTURBANCE
     Dosage: 10 MG, BID
     Dates: start: 20110501

REACTIONS (2)
  - ANKLE FRACTURE [None]
  - FALL [None]
